FAERS Safety Report 9417590 (Version 1)
Quarter: 2013Q3

REPORT INFORMATION
  Report Type: Spontaneous
  Country: US (occurrence: US)
  Receive Date: 20130724
  Receipt Date: 20130724
  Transmission Date: 20140515
  Serious: No
  Sender: FDA-Public Use
  Company Number: US-BRISTOL-MYERS SQUIBB COMPANY-19000074

PATIENT
  Age: 68 Year
  Sex: Female

DRUGS (5)
  1. ELIQUIS [Suspect]
  2. LEVOTHYROXINE [Concomitant]
  3. METOPROLOL [Concomitant]
  4. XANAX [Concomitant]
  5. KLONOPIN [Concomitant]

REACTIONS (1)
  - Pruritus [Unknown]
